FAERS Safety Report 25630902 (Version 1)
Quarter: 2025Q3

REPORT INFORMATION
  Report Type: Report from Study
  Country: EU (occurrence: EU)
  Receive Date: 20250801
  Receipt Date: 20250801
  Transmission Date: 20251021
  Serious: Yes (Other)
  Sender: AVERITAS
  Company Number: EU-GRUNENTHAL-2025-106868

PATIENT
  Age: 57 Year
  Sex: Female

DRUGS (9)
  1. NALOXEGOL OXALATE [Suspect]
     Active Substance: NALOXEGOL OXALATE
     Indication: Gastrointestinal motility disorder
     Dosage: 25 MILLIGRAM, 1/DAY
     Route: 065
     Dates: start: 20250411, end: 20250503
  2. NALOXEGOL OXALATE [Suspect]
     Active Substance: NALOXEGOL OXALATE
     Indication: Constipation
  3. PIPERACILLIN SODIUM\TAZOBACTAM SODIUM [Concomitant]
     Active Substance: PIPERACILLIN SODIUM\TAZOBACTAM SODIUM
     Indication: Pneumonia
     Dosage: 16 GRAM, 1/DAY
     Route: 065
     Dates: start: 20250419
  4. NIMOTOP [Concomitant]
     Active Substance: NIMODIPINE
     Indication: Cerebral vasoconstriction
     Route: 065
     Dates: start: 20250411
  5. PROPOFOL [Concomitant]
     Active Substance: PROPOFOL
     Indication: Sedation
     Route: 065
     Dates: start: 20250412
  6. SUFENTANIL CITRATE [Concomitant]
     Active Substance: SUFENTANIL CITRATE
     Indication: Sedation
     Route: 042
     Dates: start: 20250412
  7. MIDAZOLAM HYDROCHLORIDE [Concomitant]
     Active Substance: MIDAZOLAM HYDROCHLORIDE
     Indication: Sedation
     Route: 065
     Dates: start: 20250421
  8. MILRINONE CARINOPHARM [Concomitant]
     Indication: Intracranial pressure increased
     Route: 065
     Dates: start: 20250421
  9. HYDROCORTISONE [Concomitant]
     Active Substance: HYDROCORTISONE
     Indication: Resuscitation
     Route: 065
     Dates: start: 20250410

REACTIONS (1)
  - Hepatic cytolysis [Recovered/Resolved]

NARRATIVE: CASE EVENT DATE: 20250424
